FAERS Safety Report 5934157-8 (Version None)
Quarter: 2008Q4

REPORT INFORMATION
  Report Type: 
  Country: None (occurrence: None)
  Receive Date: 20081029
  Receipt Date: 20081024
  Transmission Date: 20090506
  Serious: Yes (Congenital Anomaly)
  Sender: FDA-Public Use
  Company Number: A0753998A

PATIENT
  Sex: Female
  Weight: 0.8 kg

DRUGS (2)
  1. COMBIVIR [Suspect]
     Indication: HIV INFECTION
     Dosage: 1TAB PER DAY
     Dates: start: 20080904
  2. KALETRA [Concomitant]
     Indication: HIV INFECTION
     Dates: start: 20080904

REACTIONS (4)
  - DRUG EXPOSURE DURING PREGNANCY [None]
  - INTRAVENTRICULAR HAEMORRHAGE [None]
  - PREMATURE BABY [None]
  - PULMONARY HAEMORRHAGE [None]
